FAERS Safety Report 13937373 (Version 4)
Quarter: 2018Q2

REPORT INFORMATION
  Report Type: Spontaneous
  Country: US (occurrence: US)
  Receive Date: 20170905
  Receipt Date: 20180418
  Transmission Date: 20180711
  Serious: Yes (Other)
  Sender: FDA-Public Use
  Company Number: US-BAUSCH-BL-2017-026332

PATIENT
  Age: 85 Year
  Sex: Female
  Weight: 40.86 kg

DRUGS (10)
  1. LEVOTHYROXINE. [Concomitant]
     Active Substance: LEVOTHYROXINE
     Indication: HYPOTHYROIDISM
  2. OCUFLOX [Concomitant]
     Active Substance: OFLOXACIN
     Indication: PREOPERATIVE CARE
  3. PRESERVISION AREDS 2 FORMULA SOFT GELS [Suspect]
     Active Substance: MINERALS\VITAMINS
     Indication: MACULAR DEGENERATION
     Route: 048
     Dates: start: 20170306
  4. GLIMEPIRIDE. [Concomitant]
     Active Substance: GLIMEPIRIDE
     Indication: BLOOD CHOLESTEROL INCREASED
  5. NATURE MADE MULTIVITAMIN [Concomitant]
     Indication: PRODUCT USED FOR UNKNOWN INDICATION
  6. TIMOLOL MALEATE OPHTHALMIC SOLUTION USP 0.5% [Suspect]
     Active Substance: TIMOLOL MALEATE
     Indication: PRODUCT USED FOR UNKNOWN INDICATION
     Dosage: IN THE MORNING
     Route: 047
     Dates: start: 201706
  7. ASPIRIN. [Concomitant]
     Active Substance: ASPIRIN
     Indication: PRODUCT USED FOR UNKNOWN INDICATION
  8. AVASTIN SHOT [Concomitant]
     Indication: EYE DISORDER
     Route: 047
  9. XALATAN [Concomitant]
     Active Substance: LATANOPROST
     Indication: PRODUCT USED FOR UNKNOWN INDICATION
  10. PREDNISONE. [Concomitant]
     Active Substance: PREDNISONE
     Indication: PREOPERATIVE CARE

REACTIONS (13)
  - Glycosylated haemoglobin increased [Unknown]
  - Weight decreased [Unknown]
  - Surgery [Unknown]
  - Hyperhidrosis [Recovered/Resolved]
  - Retinal scar [Unknown]
  - Stress [Unknown]
  - Blood cholesterol abnormal [Unknown]
  - Hypertriglyceridaemia [Unknown]
  - Intraocular pressure decreased [Recovered/Resolved]
  - Cold sweat [Recovered/Resolved]
  - Skin disorder [Recovered/Resolved]
  - Visual impairment [Unknown]
  - Faeces discoloured [Recovered/Resolved]

NARRATIVE: CASE EVENT DATE: 201703
